FAERS Safety Report 10429888 (Version 1)
Quarter: 2014Q3

REPORT INFORMATION
  Report Type: Spontaneous
  Country: US (occurrence: None)
  Receive Date: 20140903
  Receipt Date: 20140903
  Transmission Date: 20150326
  Serious: Yes (Other)
  Sender: FDA-Public Use
  Company Number: None

PATIENT
  Age: 78 Year
  Sex: Female
  Weight: 105.24 kg

DRUGS (12)
  1. TOVIAZ [Suspect]
     Active Substance: FESOTERODINE FUMARATE
     Indication: DEHYDRATION
     Route: 048
     Dates: start: 20140721
  2. TOVIAZ [Suspect]
     Active Substance: FESOTERODINE FUMARATE
     Indication: NOCTURIA
     Route: 048
     Dates: start: 20140721
  3. D3 [Concomitant]
     Active Substance: 25-HYDROXYCHOLECALCIFEROL, 5-TRANS-
  4. POTASSIUM GLUCONATE [Concomitant]
     Active Substance: POTASSIUM GLUCONATE
  5. TOVIAZ [Suspect]
     Active Substance: FESOTERODINE FUMARATE
     Indication: URINARY INCONTINENCE
     Route: 048
     Dates: start: 20140721
  6. TOVIAZ [Suspect]
     Active Substance: FESOTERODINE FUMARATE
     Indication: BLADDER SPASM
     Route: 048
     Dates: start: 20140721
  7. E [Concomitant]
  8. HYDROCHLOROTHIAZIDE. [Concomitant]
     Active Substance: HYDROCHLOROTHIAZIDE
  9. SIMVASTATIN. [Concomitant]
     Active Substance: SIMVASTATIN
  10. ASPIRIN. [Concomitant]
     Active Substance: ASPIRIN
  11. PROBIOTIC [Concomitant]
     Active Substance: PROBIOTICS NOS
  12. MAGNESIUM [Concomitant]
     Active Substance: MAGNESIUM

REACTIONS (12)
  - Eye swelling [None]
  - Dehydration [None]
  - Joint swelling [None]
  - Headache [None]
  - Pain of skin [None]
  - Pollakiuria [None]
  - Nocturia [None]
  - Gastrointestinal disorder [None]
  - Vision blurred [None]
  - Peripheral swelling [None]
  - Back pain [None]
  - Swelling face [None]

NARRATIVE: CASE EVENT DATE: 20140721
